FAERS Safety Report 14454027 (Version 1)
Quarter: 2018Q1

REPORT INFORMATION
  Report Type: Spontaneous
  Country: US (occurrence: US)
  Receive Date: 20180129
  Receipt Date: 20180129
  Transmission Date: 20180509
  Serious: No
  Sender: FDA-Public Use
  Company Number: US-ALLERGAN-1700208US

PATIENT
  Age: 27 Year
  Sex: Female

DRUGS (4)
  1. TAZORAC [Suspect]
     Active Substance: TAZAROTENE
     Dosage: UNK
  2. TAZORAC [Suspect]
     Active Substance: TAZAROTENE
     Indication: ACNE
     Dosage: UNK, QPM
     Route: 061
     Dates: start: 20160826
  3. AHA/BHA CLEANSER [Concomitant]
     Dosage: UNK, BID
  4. ALDACTONE [Concomitant]
     Active Substance: SPIRONOLACTONE
     Dosage: 100 MG, UNK

REACTIONS (2)
  - Wrong technique in product usage process [Unknown]
  - Therapeutic response decreased [Unknown]

NARRATIVE: CASE EVENT DATE: 20160826
